FAERS Safety Report 9263940 (Version 2)
Quarter: 2013Q2

REPORT INFORMATION
  Report Type: Spontaneous
  Country: JP (occurrence: JP)
  Receive Date: 20130430
  Receipt Date: 20130505
  Transmission Date: 20140414
  Serious: Yes (Hospitalization)
  Sender: FDA-Public Use
  Company Number: JP-B.I. PHARMACEUTICALS,INC./RIDGEFIELD-2013-BI-11122GD

PATIENT
  Age: 77 Year
  Sex: Male
  Weight: 72 kg

DRUGS (11)
  1. PRAMIPEXOLE [Suspect]
     Indication: PARKINSON^S DISEASE
     Dosage: 1.125 MG
  2. REBAMIPIDE [Concomitant]
     Dosage: 300 MG
     Route: 048
  3. RESISTANT LACTOBACILLUS [Concomitant]
     Route: 048
  4. FURSULTIAMINE HYDROCHLORIDE [Concomitant]
     Dosage: 75 MG
     Route: 048
  5. DROXIDOPA [Concomitant]
     Dosage: 600 MG
     Route: 048
  6. MOSAPRIDE CITRATE [Concomitant]
     Dosage: 15 MG
     Route: 048
  7. SELEGILINE HYDROCHLORIDE [Concomitant]
     Dosage: 2.5 MG
     Route: 048
  8. LEVODOPA/CARBIDOPA HYDRATE [Concomitant]
     Route: 048
  9. AMLODIPINE BESYLATE [Concomitant]
     Dosage: 2.5 MG
     Route: 048
  10. ETHYL LOFLAZEPATE [Concomitant]
     Dosage: 1 MG
     Route: 048
  11. ACETATE RINGER SOLUTION [Concomitant]
     Dosage: 500 ML

REACTIONS (2)
  - Pneumonia pneumococcal [Unknown]
  - Blood creatine phosphokinase increased [Unknown]
